FAERS Safety Report 4283566-4 (Version None)
Quarter: 2004Q1

REPORT INFORMATION
  Report Type: 
  Country: None (occurrence: None)
  Receive Date: 20040202
  Receipt Date: 20040119
  Transmission Date: 20041129
  Serious: Yes (Death)
  Sender: FDA-Public Use
  Company Number: US-GLAXOSMITHKLINE-A0494013A

PATIENT
  Age: 37 Year
  Sex: Female

DRUGS (5)
  1. PAROXETINE [Suspect]
     Indication: DEPRESSION
  2. VALIUM [Suspect]
     Indication: DEPRESSION
  3. HYDROXYZINE [Suspect]
     Indication: DEPRESSION
  4. PROPOXYPHENE HCL [Suspect]
     Indication: DEPRESSION
  5. FENTANYL [Suspect]
     Indication: DEPRESSION

REACTIONS (2)
  - COMPLETED SUICIDE [None]
  - INTENTIONAL OVERDOSE [None]
